FAERS Safety Report 12546366 (Version 1)
Quarter: 2016Q3

REPORT INFORMATION
  Report Type: Spontaneous
  Country: US (occurrence: US)
  Receive Date: 20160711
  Receipt Date: 20160711
  Transmission Date: 20161109
  Serious: No
  Sender: FDA-Public Use
  Company Number: US-009507513-1607USA002776

PATIENT
  Age: 30 Year
  Sex: Female
  Weight: 90.7 kg

DRUGS (1)
  1. NUVARING [Suspect]
     Active Substance: ETHINYL ESTRADIOL\ETONOGESTREL
     Indication: CONTRACEPTION
     Dosage: ONE RING 3 WEEKS IN 1 WEEK OUT
     Route: 067
     Dates: start: 201603, end: 201607

REACTIONS (4)
  - Device difficult to use [Recovered/Resolved]
  - Device breakage [Unknown]
  - Product quality issue [Unknown]
  - Medical device discomfort [Recovered/Resolved]

NARRATIVE: CASE EVENT DATE: 201607
